FAERS Safety Report 25141188 (Version 2)
Quarter: 2025Q2

REPORT INFORMATION
  Report Type: Spontaneous
  Country: US (occurrence: US)
  Receive Date: 20250331
  Receipt Date: 20250411
  Transmission Date: 20250716
  Serious: Yes (Hospitalization)
  Sender: BIOMARIN
  Company Number: US-SA-2025SA090009

PATIENT

DRUGS (2)
  1. ALDURAZYME [Suspect]
     Active Substance: LARONIDASE
     Indication: Mucopolysaccharidosis I
     Dosage: 20.3 MG, QW
     Route: 042
     Dates: start: 201705, end: 20250319
  2. ALDURAZYME [Suspect]
     Active Substance: LARONIDASE
     Dosage: 20.3 MG, QW
     Route: 042
     Dates: start: 2025

REACTIONS (3)
  - Bacterial infection [Unknown]
  - Air-borne transmission [Unknown]
  - Weight increased [Unknown]

NARRATIVE: CASE EVENT DATE: 20250301
